FAERS Safety Report 7792044-7 (Version None)
Quarter: 2011Q4

REPORT INFORMATION
  Report Type: 
  Country: None (occurrence: None)
  Receive Date: 20111003
  Receipt Date: 20110713
  Transmission Date: 20120403
  Serious: Yes (Other)
  Sender: FDA-Public Use
  Company Number: JP-ASTELLAS-2011JP004788

PATIENT
  Age: 41 Year
  Sex: Male

DRUGS (4)
  1. FUNGUARD [Suspect]
     Indication: ACANTHAMOEBA KERATITIS
     Route: 047
  2. ITRACONAZOLE [Concomitant]
     Indication: ACANTHAMOEBA KERATITIS
     Dosage: 100 MG, UNKNOWN/D
     Route: 048
  3. CHLORHEXIDINE GLUCONATE [Concomitant]
     Indication: ACANTHAMOEBA KERATITIS
     Dosage: UNK
     Route: 047
  4. FLUCONAZOLE [Concomitant]
     Indication: ACANTHAMOEBA KERATITIS
     Dosage: UNK
     Route: 047

REACTIONS (2)
  - OFF LABEL USE [None]
  - DRUG PRESCRIBING ERROR [None]
